FAERS Safety Report 8982848 (Version 2)
Quarter: 2012Q4

REPORT INFORMATION
  Report Type: 
  Country: US (occurrence: US)
  Receive Date: 20121221
  Receipt Date: 20121228
  Transmission Date: 20130627
  Serious: Yes (Hospitalization, Other)
  Sender: FDA-Public Use
  Company Number: US-BAXTER-2012BAX027275

PATIENT
  Age: 69 Year
  Sex: Female

DRUGS (1)
  1. DIANEAL LOW CALCIUM [Suspect]
     Indication: PERITONEAL DIALYSIS
     Route: 033

REACTIONS (5)
  - Hallucination [Recovered/Resolved]
  - Convulsion [Recovered/Resolved]
  - Herpes zoster [Recovering/Resolving]
  - Asthenia [Recovering/Resolving]
  - Asthenia [Unknown]
